FAERS Safety Report 5414042-0 (Version None)
Quarter: 2007Q3

REPORT INFORMATION
  Report Type: 
  Country: None (occurrence: None)
  Receive Date: 20070814
  Receipt Date: 20070808
  Transmission Date: 20080115
  Serious: Yes (Hospitalization)
  Sender: FDA-Public Use
  Company Number: FR-ASTRAZENECA-2007CG00438

PATIENT
  Age: 77 Year
  Sex: Male

DRUGS (8)
  1. CRESTOR [Suspect]
     Route: 048
     Dates: start: 20060201
  2. KARDEGIC [Suspect]
     Dates: start: 20020101
  3. SYMBICORT [Concomitant]
     Route: 055
  4. NEXIUM [Concomitant]
     Route: 048
     Dates: start: 20060201
  5. TRENTADIL [Concomitant]
     Dates: start: 20020101
  6. VASTAREL [Concomitant]
     Dates: start: 20020101
  7. PNEUMOREL [Concomitant]
     Dates: start: 20020101
  8. SINGULAIR [Concomitant]

REACTIONS (3)
  - FOLLICULITIS [None]
  - LICHENOID KERATOSIS [None]
  - TOXIC SKIN ERUPTION [None]
